FAERS Safety Report 16062180 (Version 1)
Quarter: 2019Q1

REPORT INFORMATION
  Report Type: Spontaneous
  Country: US (occurrence: US)
  Receive Date: 20190312
  Receipt Date: 20190312
  Transmission Date: 20190418
  Serious: No
  Sender: FDA-Public Use
  Company Number: US-MYLANLABS-2019M1020857

PATIENT
  Sex: Male
  Weight: 88.45 kg

DRUGS (4)
  1. EPINEPHRINE. [Suspect]
     Active Substance: EPINEPHRINE
     Indication: LIBIDO DECREASED
  2. EPINEPHRINE. [Suspect]
     Active Substance: EPINEPHRINE
     Indication: AMNESIA
  3. EPINEPHRINE. [Suspect]
     Active Substance: EPINEPHRINE
     Indication: ARTHRALGIA
  4. EPINEPHRINE. [Suspect]
     Active Substance: EPINEPHRINE
     Indication: MUSCLE FATIGUE
     Dosage: UNK

REACTIONS (1)
  - Incorrect route of product administration [Unknown]
